FAERS Safety Report 12903337 (Version 2)
Quarter: 2016Q4

REPORT INFORMATION
  Report Type: Report from Study
  Country: GB (occurrence: GB)
  Receive Date: 20161102
  Receipt Date: 20161115
  Transmission Date: 20170207
  Serious: Yes (Other)
  Sender: FDA-Public Use
  Company Number: GB-JNJFOC-20161025788

PATIENT
  Age: 51 Year
  Sex: Male
  Weight: 88.7 kg

DRUGS (2)
  1. BRUFEN RETARD [Concomitant]
     Active Substance: IBUPROFEN
     Indication: PITUITARY ENLARGEMENT
     Route: 065
     Dates: start: 20090715
  2. STELARA [Suspect]
     Active Substance: USTEKINUMAB
     Indication: PSORIASIS
     Route: 058
     Dates: start: 20140121

REACTIONS (1)
  - Bowen^s disease [Not Recovered/Not Resolved]

NARRATIVE: CASE EVENT DATE: 20160903
